FAERS Safety Report 11579009 (Version 1)
Quarter: 2015Q3

REPORT INFORMATION
  Report Type: Spontaneous
  Country: US (occurrence: US)
  Receive Date: 20150916
  Receipt Date: 20150916
  Transmission Date: 20151125
  Serious: No
  Sender: FDA-Public Use
  Company Number: US-ELI_LILLY_AND_COMPANY-US201307006385

PATIENT
  Age: 63 Year
  Sex: Female
  Weight: 49.43 kg

DRUGS (7)
  1. LISINOPRIL. [Concomitant]
     Active Substance: LISINOPRIL
     Dosage: 5 MG, UNK
  2. ACTONEL [Concomitant]
     Active Substance: RISEDRONATE SODIUM
     Dosage: 35 MG, UNK
  3. RESTASIS [Concomitant]
     Active Substance: CYCLOSPORINE
  4. PREDNISOLONE. [Concomitant]
     Active Substance: PREDNISOLONE
  5. HUMALOG [Suspect]
     Active Substance: INSULIN LISPRO
     Indication: TYPE 1 DIABETES MELLITUS
     Dosage: 6 U, PRN
  6. PREMARIN [Concomitant]
     Active Substance: ESTROGENS, CONJUGATED
  7. LANTUS [Concomitant]
     Active Substance: INSULIN GLARGINE
     Dosage: 14 U, QD

REACTIONS (4)
  - Incorrect dose administered by device [Unknown]
  - Fear [Unknown]
  - Anxiety [Unknown]
  - Blood glucose increased [Recovered/Resolved]

NARRATIVE: CASE EVENT DATE: 20130716
